FAERS Safety Report 8524462-3 (Version None)
Quarter: 2012Q3

REPORT INFORMATION
  Report Type: 
  Country: None (occurrence: None)
  Receive Date: 20120720
  Receipt Date: 20120716
  Transmission Date: 20120928
  Serious: No
  Sender: FDA-Public Use
  Company Number: US-PFIZER INC-2012086788

PATIENT
  Sex: Female
  Weight: 54.422 kg

DRUGS (1)
  1. XALATAN [Suspect]
     Indication: GLAUCOMA
     Dosage: 1 GTT, 1X/DAY IN THE RIGHT EYE AT BEDTIME
     Route: 047
     Dates: start: 20110413, end: 20110615

REACTIONS (4)
  - LACRIMATION INCREASED [None]
  - INCORRECT DOSE ADMINISTERED [None]
  - BLOOD SODIUM DECREASED [None]
  - EYE IRRITATION [None]
